FAERS Safety Report 4723417-4 (Version None)
Quarter: 2005Q3

REPORT INFORMATION
  Report Type: 
  Country: None (occurrence: None)
  Receive Date: 20050725
  Receipt Date: 20031128
  Transmission Date: 20060218
  Serious: Yes (Hospitalization)
  Sender: FDA-Public Use
  Company Number: PHBS2003DE13397

PATIENT
  Sex: Female

DRUGS (2)
  1. CLOZAPINE [Suspect]
     Indication: MEDICATION ERROR
     Route: 065
  2. CLOZAPINE [Suspect]
     Dosage: 50-100 MG/D
     Route: 065

REACTIONS (13)
  - AREFLEXIA [None]
  - ASTHENIA [None]
  - DRUG SCREEN POSITIVE [None]
  - DRUG TOXICITY [None]
  - DYSPNOEA [None]
  - DYSSTASIA [None]
  - FATIGUE [None]
  - FEELING ABNORMAL [None]
  - OVERDOSE [None]
  - PARALYTIC GAIT [None]
  - PYREXIA [None]
  - SOMNOLENCE [None]
  - VICTIM OF CRIME [None]
